FAERS Safety Report 9450996 (Version 3)
Quarter: 2014Q1

REPORT INFORMATION
  Report Type: Spontaneous
  Country: GB (occurrence: None)
  Receive Date: 20130807
  Receipt Date: 20140122
  Transmission Date: 20141002
  Serious: Yes (Congenital Anomaly, Other)
  Sender: FDA-Public Use
  Company Number: AUR-APL-2013-06352

PATIENT
  Sex: Female
  Weight: 2.65 kg

DRUGS (2)
  1. QUETIAPINE [Suspect]
     Indication: BIPOLAR DISORDER
     Dosage: (300 MG), TRANSPLACENTAL
     Route: 064
  2. DIAZEPAM (DIAZEPAM) [Concomitant]

REACTIONS (4)
  - Maternal drugs affecting foetus [None]
  - Congenital hand malformation [None]
  - Phalangeal agenesis [None]
  - Arthropathy [None]
